FAERS Safety Report 8206454-7 (Version None)
Quarter: 2012Q1

REPORT INFORMATION
  Report Type: 
  Country: None (occurrence: None)
  Receive Date: 20120313
  Receipt Date: 20120309
  Transmission Date: 20120608
  Serious: Yes (Life-Threatening, Hospitalization)
  Sender: FDA-Public Use
  Company Number: US-ROCHE-801571

PATIENT
  Sex: Female
  Weight: 68.4 kg

DRUGS (1)
  1. VEMURAFENIB [Suspect]
     Indication: METASTATIC MALIGNANT MELANOMA
     Route: 048
     Dates: start: 20110817, end: 20110907

REACTIONS (2)
  - RESPIRATORY FAILURE [None]
  - CLOSTRIDIAL INFECTION [None]
